FAERS Safety Report 14843199 (Version 7)
Quarter: 2018Q3

REPORT INFORMATION
  Report Type: Spontaneous
  Country: DE (occurrence: DE)
  Receive Date: 20180503
  Receipt Date: 20180808
  Transmission Date: 20181010
  Serious: Yes (Hospitalization, Other)
  Sender: FDA-Public Use
  Company Number: PHHY2018DE075653

PATIENT
  Sex: Female
  Weight: 75 kg

DRUGS (5)
  1. SIGNIFOR LAR [Suspect]
     Active Substance: PASIREOTIDE
     Indication: PITUITARY TUMOUR BENIGN
  2. SIGNIFOR LAR [Suspect]
     Active Substance: PASIREOTIDE
     Indication: ACROMEGALY
     Dosage: 60 MG, EVERY 21 DAYS
     Route: 030
     Dates: start: 20140423
  3. DOSTINEX [Suspect]
     Active Substance: CABERGOLINE
     Indication: PITUITARY TUMOUR BENIGN
     Dosage: 7.5 MG, QW
     Route: 048
     Dates: start: 20130219, end: 201803
  4. HYDROCORTISONE. [Suspect]
     Active Substance: HYDROCORTISONE
     Indication: PRODUCT USED FOR UNKNOWN INDICATION
     Dosage: 10 MG/M2/, QD BODY SURFACE
     Route: 048
     Dates: start: 201305
  5. L?THYROXIN [Concomitant]
     Active Substance: LEVOTHYROXINE SODIUM
     Indication: HYPOPITUITARISM
     Dosage: 62.5 OT, QD
     Route: 048
     Dates: start: 2013

REACTIONS (9)
  - Vitreous haemorrhage [Recovering/Resolving]
  - Sleep disorder [Unknown]
  - Abdominal pain [Unknown]
  - Inappropriate schedule of drug administration [Unknown]
  - Cataract [Recovering/Resolving]
  - Hypogonadism [Unknown]
  - Product use issue [Unknown]
  - Product administered at inappropriate site [Unknown]
  - Needle issue [Unknown]

NARRATIVE: CASE EVENT DATE: 201507
